FAERS Safety Report 8790009 (Version 3)
Quarter: 2013Q2

REPORT INFORMATION
  Report Type: Report from Study
  Country: JP (occurrence: JP)
  Receive Date: 20120917
  Receipt Date: 20130618
  Transmission Date: 20140414
  Serious: Yes (Other)
  Sender: FDA-Public Use
  Company Number: JP-VERTEX PHARMACEUTICAL INC.-AE-2012-006007

PATIENT
  Age: 43 Year
  Sex: Female

DRUGS (5)
  1. VX-950 (TELAPREVIR) [Suspect]
     Indication: CHRONIC HEPATITIS C
     Dosage: 1500 MG, QD
     Route: 048
     Dates: start: 20120301, end: 20120522
  2. PEGINTERFERON ALFA-2B [Suspect]
     Indication: CHRONIC HEPATITIS C
     Dosage: 1.5 ?G/KG, WEEKLY
     Route: 058
     Dates: start: 20120301, end: 20120808
  3. RIBAVIRIN [Concomitant]
     Dosage: 400 MG, QD
     Route: 048
     Dates: start: 20120301, end: 20120814
  4. MUCOSTA [Concomitant]
     Dosage: 100 MG, PRN
     Route: 048
     Dates: start: 20120328
  5. ZYRTEC [Concomitant]
     Dosage: UNK
     Route: 048
     Dates: start: 20120509

REACTIONS (1)
  - Neutrophil count decreased [Not Recovered/Not Resolved]
